FAERS Safety Report 4368737-0 (Version None)
Quarter: 2004Q2

REPORT INFORMATION
  Report Type: 
  Country: None (occurrence: None)
  Receive Date: 20040528
  Receipt Date: 20040518
  Transmission Date: 20050107
  Serious: Yes (Hospitalization)
  Sender: FDA-Public Use
  Company Number: 2004023319

PATIENT
  Age: 80 Year
  Sex: Male

DRUGS (11)
  1. LIPITOR [Suspect]
     Indication: HYPERLIPIDAEMIA
     Dosage: 10 MG (10 MG, 1 IN 1 D), ORAL
     Route: 048
     Dates: start: 20021201, end: 20040326
  2. BUFFERIN [Concomitant]
  3. TRIAZOLAM [Concomitant]
  4. MAGNESIUM OXIDE (MAGNESIUM OXIDE) [Concomitant]
  5. FAMOTIDINE [Concomitant]
  6. MEXILETINE HYDROCHLORIDE         (MEXILETINE HYDROCHLORIDE) [Concomitant]
  7. EPALRESTAT (EPALRESTAT) [Concomitant]
  8. NITRAZEPAM [Concomitant]
  9. VOGLIBOSE (VOGLIBOSE) [Concomitant]
  10. BERAPROST SODIUM (BERAPROST SODIUM) [Concomitant]
  11. CLOPERASTINE HYDROCHLORIDE (CLOPERASTINE HYDROCHLORIDE) [Concomitant]

REACTIONS (7)
  - BRONCHITIS [None]
  - CHRONIC OBSTRUCTIVE AIRWAYS DISEASE EXACERBATED [None]
  - FALL [None]
  - HEAD INJURY [None]
  - JOINT INJURY [None]
  - PETIT MAL EPILEPSY [None]
  - RHABDOMYOLYSIS [None]
